FAERS Safety Report 18510282 (Version 1)
Quarter: 2020Q4

REPORT INFORMATION
  Report Type: Spontaneous
  Country: US (occurrence: US)
  Receive Date: 20201116
  Receipt Date: 20201116
  Transmission Date: 20210114
  Serious: No
  Sender: FDA-Public Use
  Company Number: None

PATIENT
  Age: 94 Year
  Sex: Male
  Weight: 67.46 kg

DRUGS (21)
  1. LISINOPRIL. [Concomitant]
     Active Substance: LISINOPRIL
  2. ACYCLOVIR. [Concomitant]
     Active Substance: ACYCLOVIR
  3. ZAFIRLUKAST. [Concomitant]
     Active Substance: ZAFIRLUKAST
  4. KEYTRUDA [Concomitant]
     Active Substance: PEMBROLIZUMAB
  5. VITAMIN B12 [Concomitant]
     Active Substance: CYANOCOBALAMIN
  6. PROVENTIL HFA [Concomitant]
     Active Substance: ALBUTEROL SULFATE
  7. TAMSULOSIN HCL [Concomitant]
     Active Substance: TAMSULOSIN HYDROCHLORIDE
  8. ATORVASTATIN CALCIUM. [Concomitant]
     Active Substance: ATORVASTATIN CALCIUM
  9. PANTOPRAZOLE SODIUM. [Concomitant]
     Active Substance: PANTOPRAZOLE SODIUM
  10. CREON [Concomitant]
     Active Substance: PANCRELIPASE AMYLASE\PANCRELIPASE LIPASE\PANCRELIPASE PROTEASE
  11. VITAMIN D [Concomitant]
     Active Substance: VITAMIN D NOS
  12. SINGULAIR [Concomitant]
     Active Substance: MONTELUKAST SODIUM
  13. FISH OIL BURP-LESS [Concomitant]
  14. CENTRUM SILVER [Concomitant]
     Active Substance: MINERALS\VITAMINS
  15. ASPIRIN 81 [Concomitant]
     Active Substance: ASPIRIN
  16. TEMOZOLOMIDE. [Suspect]
     Active Substance: TEMOZOLOMIDE
     Indication: MALIGNANT MELANOMA
     Route: 048
     Dates: start: 20201015, end: 20201116
  17. TERAZOSIN HCL [Concomitant]
     Active Substance: TERAZOSIN HYDROCHLORIDE
  18. SIMVASTATIN. [Concomitant]
     Active Substance: SIMVASTATIN
  19. PREDNISONE. [Concomitant]
     Active Substance: PREDNISONE
  20. FORADIL AEROLIZER CAPS [Concomitant]
  21. LEVOTHYROXINE SODIUM. [Concomitant]
     Active Substance: LEVOTHYROXINE SODIUM

REACTIONS (1)
  - Hospice care [None]

NARRATIVE: CASE EVENT DATE: 20201116
